FAERS Safety Report 9313407 (Version 1)
Quarter: 2013Q2

REPORT INFORMATION
  Report Type: Spontaneous
  Country: GB (occurrence: GB)
  Receive Date: 20130528
  Receipt Date: 20130528
  Transmission Date: 20140414
  Serious: Yes (Other)
  Sender: FDA-Public Use
  Company Number: PHHY2013GB051301

PATIENT
  Sex: Male

DRUGS (3)
  1. CLONIDINE [Suspect]
     Indication: POOR QUALITY SLEEP
     Dosage: 25 UG
     Route: 048
     Dates: start: 20130410, end: 20130426
  2. CONCERTA LP [Concomitant]
     Indication: ATTENTION DEFICIT/HYPERACTIVITY DISORDER
     Dosage: 18 MG
     Route: 048
     Dates: start: 20110401
  3. BIO-MELATONIN [Concomitant]
     Dosage: 6 MG
     Route: 048
     Dates: end: 20130409

REACTIONS (2)
  - Somnambulism [Recovered/Resolved]
  - Suicidal ideation [Recovered/Resolved]
